FAERS Safety Report 24225082 (Version 1)
Quarter: 2024Q3

REPORT INFORMATION
  Report Type: Report from Study
  Country: US (occurrence: None)
  Receive Date: 20240820
  Receipt Date: 20240820
  Transmission Date: 20241016
  Serious: Yes (Hospitalization)
  Sender: ASTRAZENECA
  Company Number: 2022A207350

PATIENT
  Sex: Male

DRUGS (2)
  1. CALQUENCE [Interacting]
     Active Substance: ACALABRUTINIB
     Route: 048
  2. ELIQUIS [Interacting]
     Active Substance: APIXABAN
     Route: 065

REACTIONS (6)
  - Drug interaction [Unknown]
  - Haemoptysis [Recovering/Resolving]
  - Chest pain [Recovering/Resolving]
  - Anaemia [Recovering/Resolving]
  - Dyspnoea [Recovering/Resolving]
  - Product dose omission issue [Recovering/Resolving]
